FAERS Safety Report 6380464-7 (Version None)
Quarter: 2009Q3

REPORT INFORMATION
  Report Type: 
  Country: None (occurrence: None)
  Receive Date: 20090929
  Receipt Date: 20090916
  Transmission Date: 20100115
  Serious: Yes (Life-Threatening, Hospitalization, Other)
  Sender: FDA-Public Use
  Company Number: US-AMGEN-QUU345222

PATIENT
  Sex: Female

DRUGS (6)
  1. ENBREL [Suspect]
     Indication: PSORIASIS
     Route: 058
     Dates: start: 20060222
  2. TEMOVATE [Concomitant]
     Route: 061
     Dates: start: 20060222
  3. DOVONEX [Concomitant]
     Dates: start: 20060222
  4. PREDNISONE TAB [Concomitant]
     Dates: start: 20060222
  5. MOBIC [Concomitant]
     Dates: start: 20060222
  6. LEVOXYL [Concomitant]

REACTIONS (33)
  - ANAEMIA [None]
  - ATRIAL FLUTTER [None]
  - CARDIAC FAILURE CONGESTIVE [None]
  - CARDIOGENIC SHOCK [None]
  - CARDIOMEGALY [None]
  - CEREBROVASCULAR ACCIDENT [None]
  - CHRONIC OBSTRUCTIVE PULMONARY DISEASE [None]
  - CORONARY ARTERY DISEASE [None]
  - DERMATITIS PSORIASIFORM [None]
  - DRUG ERUPTION [None]
  - ENDOCARDITIS STAPHYLOCOCCAL [None]
  - GASTROINTESTINAL HAEMORRHAGE [None]
  - GASTROOESOPHAGEAL REFLUX DISEASE [None]
  - HEART VALVE INCOMPETENCE [None]
  - HYPERTENSION [None]
  - LARYNGEAL STENOSIS [None]
  - LUNG INFECTION PSEUDOMONAL [None]
  - LYMPHADENOPATHY [None]
  - MENINGITIS STAPHYLOCOCCAL [None]
  - MYOCARDIAL INFARCTION [None]
  - PLEURAL EFFUSION [None]
  - PSORIASIS [None]
  - PULMONARY HYPERTENSION [None]
  - RENAL FAILURE ACUTE [None]
  - RESPIRATORY ARREST [None]
  - RESPIRATORY FAILURE [None]
  - SEPSIS [None]
  - SEPTIC SHOCK [None]
  - STAPHYLOCOCCAL SCALDED SKIN SYNDROME [None]
  - THROMBOCYTOPENIA [None]
  - TOOTH FRACTURE [None]
  - TRICUSPID VALVE INCOMPETENCE [None]
  - WOUND [None]
